FAERS Safety Report 21112024 (Version 1)
Quarter: 2022Q3

REPORT INFORMATION
  Report Type: Spontaneous
  Country: US (occurrence: US)
  Receive Date: 20220721
  Receipt Date: 20220721
  Transmission Date: 20221027
  Serious: No
  Sender: FDA-Public Use
  Company Number: US-PERRIGO-21US031951

PATIENT
  Age: 58 Year
  Sex: Male
  Weight: 84.807 kg

DRUGS (4)
  1. MINOXIDIL [Suspect]
     Active Substance: MINOXIDIL
     Indication: Alopecia
     Dosage: 1 ML, BID
     Route: 061
     Dates: start: 20211129, end: 20211201
  2. LOVASTATIN [Concomitant]
     Active Substance: LOVASTATIN
     Indication: Blood cholesterol
     Dosage: UNK
     Route: 065
  3. METHIMAZOLE [Concomitant]
     Active Substance: METHIMAZOLE
     Indication: Thyroid disorder
     Dosage: UNK
     Route: 065
  4. AMLODIPINE [Concomitant]
     Active Substance: AMLODIPINE BESYLATE
     Indication: Hypertension
     Dosage: UNK
     Route: 065

REACTIONS (2)
  - Application site discharge [Not Recovered/Not Resolved]
  - Application site pruritus [Recovered/Resolved]

NARRATIVE: CASE EVENT DATE: 20211129
